FAERS Safety Report 19820266 (Version 1)
Quarter: 2021Q3

REPORT INFORMATION
  Report Type: Spontaneous
  Country: FR (occurrence: FR)
  Receive Date: 20210913
  Receipt Date: 20210913
  Transmission Date: 20211014
  Serious: Yes (Hospitalization)
  Sender: FDA-Public Use
  Company Number: NVSC2021FR202884

PATIENT
  Age: 24 Year
  Sex: Female

DRUGS (3)
  1. ROCEPHINE [Suspect]
     Active Substance: CEFTRIAXONE SODIUM
     Indication: SALPINGITIS
     Dosage: 1 G (1G/JOUR)
     Route: 042
     Dates: start: 20210703, end: 20210705
  2. DOXYCYCLINE. [Suspect]
     Active Substance: DOXYCYCLINE
     Indication: SALPINGITIS
     Dosage: 100 MG, BID (100MG X2/JOUR)
     Route: 048
     Dates: start: 20210703
  3. METRONIDAZOLE. [Suspect]
     Active Substance: METRONIDAZOLE
     Indication: SALPINGITIS
     Dosage: 500 MG, BID (500MG X2/JOUR)
     Route: 042
     Dates: start: 20210703, end: 20210705

REACTIONS (2)
  - Leukopenia [Not Recovered/Not Resolved]
  - Neutropenia [Not Recovered/Not Resolved]

NARRATIVE: CASE EVENT DATE: 20210705
